FAERS Safety Report 15984378 (Version 1)
Quarter: 2019Q1

REPORT INFORMATION
  Report Type: Spontaneous
  Country: FR (occurrence: FR)
  Receive Date: 20190220
  Receipt Date: 20190220
  Transmission Date: 20190418
  Serious: Yes (Hospitalization)
  Sender: FDA-Public Use
  Company Number: FR-ACCORD-108596

PATIENT
  Age: 79 Year
  Sex: Female

DRUGS (5)
  1. TERALITHE [Concomitant]
     Active Substance: LITHIUM CARBONATE
     Indication: BIPOLAR DISORDER
     Dosage: STRENGTH 400 MG,BREAKABLE SUSTAINED RELEASE TABLET
     Route: 048
     Dates: end: 20180605
  2. ARIPIPRAZOLE. [Suspect]
     Active Substance: ARIPIPRAZOLE
     Indication: BIPOLAR DISORDER
     Route: 048
     Dates: start: 201803, end: 201805
  3. CITALOPRAM [Concomitant]
     Active Substance: CITALOPRAM HYDROBROMIDE
     Indication: BIPOLAR DISORDER
     Route: 048
     Dates: end: 20180607
  4. SERESTA [Concomitant]
     Active Substance: OXAZEPAM
     Indication: BIPOLAR DISORDER
     Dosage: STRENGTH 50 MG,SCORED TABLET
     Route: 048
     Dates: end: 20180607
  5. RAMIPRIL. [Concomitant]
     Active Substance: RAMIPRIL
     Indication: HYPERTENSION
     Route: 048
     Dates: end: 20180606

REACTIONS (4)
  - Abnormal behaviour [Recovered/Resolved]
  - Extrapyramidal disorder [Recovered/Resolved]
  - Confusional state [Recovered/Resolved]
  - Irregular sleep wake rhythm disorder [Recovered/Resolved]

NARRATIVE: CASE EVENT DATE: 201804
